FAERS Safety Report 8161964-6 (Version None)
Quarter: 2012Q1

REPORT INFORMATION
  Report Type: 
  Country: None (occurrence: None)
  Receive Date: 20120224
  Receipt Date: 20120221
  Transmission Date: 20120608
  Serious: Yes (Hospitalization, Disabling, Other)
  Sender: FDA-Public Use
  Company Number: US-PFIZER INC-2011151535

PATIENT
  Sex: Female

DRUGS (1)
  1. CHANTIX [Suspect]
     Indication: SMOKING CESSATION THERAPY
     Dosage: STARTER PACK, UNK
     Route: 048
     Dates: start: 20061201, end: 20070201

REACTIONS (7)
  - MANIA [None]
  - MENTAL IMPAIRMENT [None]
  - PANIC ATTACK [None]
  - MENTAL DISORDER [None]
  - TACHYPHRENIA [None]
  - INTENTIONAL OVERDOSE [None]
  - SUICIDE ATTEMPT [None]
